FAERS Safety Report 6014811-2 (Version None)
Quarter: 2008Q4

REPORT INFORMATION
  Report Type: 
  Country: None (occurrence: None)
  Receive Date: 20081219
  Receipt Date: 20081209
  Transmission Date: 20090506
  Serious: Yes (Other)
  Sender: FDA-Public Use
  Company Number: CA-PFIZER INC-2008097665

PATIENT

DRUGS (2)
  1. LIPITOR [Suspect]
     Indication: ARTERIAL OCCLUSIVE DISEASE
     Dosage: 20 MG, 1X/DAY
     Route: 048
     Dates: start: 20050101
  2. LIPITOR [Suspect]
     Indication: BLOOD CHOLESTEROL

REACTIONS (24)
  - ABDOMINAL PAIN [None]
  - AGEUSIA [None]
  - BLINDNESS UNILATERAL [None]
  - BLOOD CREATININE INCREASED [None]
  - CONSTIPATION [None]
  - DRY EYE [None]
  - DRY MOUTH [None]
  - EPIDIDYMITIS [None]
  - EYE DISORDER [None]
  - EYE HAEMORRHAGE [None]
  - GASTROINTESTINAL PAIN [None]
  - HELICOBACTER INFECTION [None]
  - HYPERTENSION [None]
  - LIVER DISORDER [None]
  - MALAISE [None]
  - MICTURITION FREQUENCY DECREASED [None]
  - MOUTH ULCERATION [None]
  - MYALGIA [None]
  - NUCHAL RIGIDITY [None]
  - OPTIC DISC VASCULAR DISORDER [None]
  - OPTIC NERVE DISORDER [None]
  - PAIN [None]
  - RETINAL OEDEMA [None]
  - VISUAL ACUITY REDUCED [None]
